FAERS Safety Report 5578863-6 (Version None)
Quarter: 2008Q1

REPORT INFORMATION
  Report Type: 
  Country: None (occurrence: None)
  Receive Date: 20080102
  Receipt Date: 20071218
  Transmission Date: 20080703
  Serious: Yes (Hospitalization, Other)
  Sender: FDA-Public Use
  Company Number: BR-BAYER-200715816GDS

PATIENT
  Age: 46 Year
  Sex: Male
  Weight: 75 kg

DRUGS (8)
  1. LEVITRA [Suspect]
     Indication: ERECTILE DYSFUNCTION
     Dosage: AS USED: 10 MG  UNIT DOSE: 10 MG
     Route: 048
     Dates: start: 20040101
  2. DIOVAN [Concomitant]
     Indication: HYPERTENSION
     Route: 048
     Dates: start: 20050101, end: 20060301
  3. CORUS [Concomitant]
     Indication: HYPERTENSION
     Route: 048
     Dates: start: 20070701
  4. ESTRABOM [Concomitant]
     Indication: ANXIETY
     Route: 048
  5. ELITON [Concomitant]
     Indication: ANXIETY
     Route: 065
     Dates: start: 20070901
  6. LESCOL [Concomitant]
     Indication: BLOOD CHOLESTEROL INCREASED
     Dosage: TOTAL DAILY DOSE: 20 MG  UNIT DOSE: 20 MG
     Route: 048
     Dates: start: 20070901
  7. STABLON [Concomitant]
     Indication: DEPRESSION
     Dosage: TOTAL DAILY DOSE: 2.5 MG  UNIT DOSE: 2.5 MG
     Route: 048
  8. EUTONIS [Concomitant]
     Indication: DEPRESSION
     Dosage: UNIT DOSE: 2 MG
     Route: 048

REACTIONS (4)
  - ERYTHEMA [None]
  - HEADACHE [None]
  - PROSTATE CANCER [None]
  - RADICAL PROSTATECTOMY [None]
